FAERS Safety Report 17835207 (Version 3)
Quarter: 2020Q3

REPORT INFORMATION
  Report Type: Spontaneous
  Country: CN (occurrence: CN)
  Receive Date: 20200528
  Receipt Date: 20200727
  Transmission Date: 20201103
  Serious: Yes (Hospitalization)
  Sender: FDA-Public Use
  Company Number: CN-CELGENEUS-CHN-20200507882

PATIENT
  Age: 49 Year
  Sex: Male
  Weight: 50 kg

DRUGS (14)
  1. ABRAXANE [Suspect]
     Active Substance: PACLITAXEL
     Indication: SQUAMOUS CELL CARCINOMA OF LUNG
     Dosage: 156 MILLIGRAM
     Route: 041
     Dates: start: 20200407, end: 20200506
  2. ABRAXANE [Suspect]
     Active Substance: PACLITAXEL
     Dosage: 115 MILLIGRAM
     Route: 041
     Dates: start: 20200520, end: 20200520
  3. METOCLOPRAMIDE HYDROCHLORIDE. [Concomitant]
     Active Substance: METOCLOPRAMIDE HYDROCHLORIDE
     Indication: VOMITING
     Dosage: 10 MILLIGRAM
     Route: 030
     Dates: start: 20200428, end: 20200506
  4. CARBOPLATIN. [Suspect]
     Active Substance: CARBOPLATIN
     Dosage: 355 MILLIGRAM
     Route: 041
     Dates: start: 20200520, end: 20200520
  5. PALONOSETRON. [Concomitant]
     Active Substance: PALONOSETRON HYDROCHLORIDE
     Indication: VOMITING
     Dosage: 5 MILLILITER
     Route: 040
     Dates: start: 20200428, end: 20200506
  6. RECOMBINANT HUMAN GRANULOCYTE STIMULATING FACTOR [Concomitant]
     Indication: WHITE BLOOD CELL COUNT DECREASED
     Dosage: .3 MILLIGRAM
     Route: 058
     Dates: start: 20200505
  7. SERPLULIMAB. [Concomitant]
     Active Substance: SERPLULIMAB
     Route: 041
     Dates: start: 20200520, end: 20200520
  8. CARBOPLATIN. [Suspect]
     Active Substance: CARBOPLATIN
     Dosage: 493 MILLIGRAM
     Route: 041
     Dates: start: 20200428, end: 20200428
  9. SODIUM CHLORIDE. [Concomitant]
     Active Substance: SODIUM CHLORIDE
     Indication: FLUID REPLACEMENT
     Dosage: 500 MILLILITER
     Route: 041
     Dates: start: 20200428
  10. OMEPRAZOLE SODIUM [Concomitant]
     Active Substance: OMEPRAZOLE SODIUM
     Indication: PROPHYLAXIS
     Dosage: 60 MILLIGRAM
     Route: 041
     Dates: start: 20200428, end: 20200506
  11. GLUTATHIONE [Concomitant]
     Active Substance: GLUTATHIONE
     Indication: PROPHYLAXIS
     Dosage: 1.2 GRAM
     Route: 041
     Dates: start: 20200428, end: 20200506
  12. SODIUM CHLORIDE. [Concomitant]
     Active Substance: SODIUM CHLORIDE
     Indication: FLUID REPLACEMENT
  13. CARBOPLATIN. [Suspect]
     Active Substance: CARBOPLATIN
     Indication: SQUAMOUS CELL CARCINOMA OF LUNG
     Dosage: 446 MILLIGRAM
     Route: 041
     Dates: start: 20200407
  14. SERPLULIMAB. [Concomitant]
     Active Substance: SERPLULIMAB
     Indication: SQUAMOUS CELL CARCINOMA OF LUNG
     Dosage: 225 MILLIGRAM
     Route: 041
     Dates: start: 20200407, end: 20200428

REACTIONS (1)
  - Bone marrow failure [Recovered/Resolved]

NARRATIVE: CASE EVENT DATE: 20200512
